FAERS Safety Report 7435054-1 (Version None)
Quarter: 2011Q2

REPORT INFORMATION
  Report Type: 
  Country: None (occurrence: None)
  Receive Date: 20110425
  Receipt Date: 20110413
  Transmission Date: 20111010
  Serious: Yes (Hospitalization)
  Sender: FDA-Public Use
  Company Number: PHHY2011BR31378

PATIENT
  Sex: Female

DRUGS (1)
  1. FORASEQ [Suspect]

REACTIONS (3)
  - ASTHMA [None]
  - BRONCHOSPASM [None]
  - PNEUMONIA [None]
